FAERS Safety Report 7312554-6 (Version None)
Quarter: 2011Q1

REPORT INFORMATION
  Report Type: 
  Country: None (occurrence: None)
  Receive Date: 20110214
  Receipt Date: 20110204
  Transmission Date: 20110831
  Serious: Yes (Disabling, Other)
  Sender: FDA-Public Use
  Company Number: TRP_07551_2011

PATIENT
  Sex: Female
  Weight: 54.4316 kg

DRUGS (3)
  1. RIBASPHERE [Suspect]
     Indication: HEPATITIS C
     Dosage: (1000 MG, DAILY ORAL)
     Route: 048
     Dates: start: 20100914, end: 20101027
  2. PEGASYS [Suspect]
     Indication: HEPATITIS C
     Dosage: (DF)
     Dates: start: 20100101, end: 20101027
  3. RIBAVIRIN [Suspect]
     Indication: HEPATITIS C
     Dosage: (1000 MG, DAILY [400/600] ORAL)
     Route: 048
     Dates: start: 20100101, end: 20100913

REACTIONS (16)
  - HEADACHE [None]
  - HYPOAESTHESIA [None]
  - ALOPECIA [None]
  - APPARENT DEATH [None]
  - PAIN OF SKIN [None]
  - MOVEMENT DISORDER [None]
  - MOOD ALTERED [None]
  - VISION BLURRED [None]
  - DECREASED APPETITE [None]
  - PYREXIA [None]
  - SKIN DISORDER [None]
  - WEIGHT DECREASED [None]
  - MALAISE [None]
  - EYE DISORDER [None]
  - DEPRESSION [None]
  - ANXIETY [None]
